FAERS Safety Report 16239643 (Version 1)
Quarter: 2019Q2

REPORT INFORMATION
  Report Type: Spontaneous
  Country: GB (occurrence: GB)
  Receive Date: 20190425
  Receipt Date: 20190425
  Transmission Date: 20190711
  Serious: Yes (Other)
  Sender: FDA-Public Use
  Company Number: GB-JNJFOC-20190432344

PATIENT
  Age: 39 Year
  Sex: Female
  Weight: 76.2 kg

DRUGS (2)
  1. SERTRALINE [Concomitant]
     Active Substance: SERTRALINE HYDROCHLORIDE
     Route: 065
  2. OVEX [Suspect]
     Active Substance: MEBENDAZOLE
     Indication: ENTEROBIASIS
     Route: 048
     Dates: start: 20190325, end: 20190325

REACTIONS (7)
  - Paraesthesia oral [Recovered/Resolved with Sequelae]
  - Swelling [Recovered/Resolved]
  - Cough [Recovered/Resolved]
  - Pharyngeal paraesthesia [Recovered/Resolved with Sequelae]
  - Urticaria [Recovered/Resolved with Sequelae]
  - Dyspnoea [Recovered/Resolved]
  - Pruritus [Recovered/Resolved with Sequelae]

NARRATIVE: CASE EVENT DATE: 20190325
